FAERS Safety Report 25135310 (Version 2)
Quarter: 2025Q2

REPORT INFORMATION
  Report Type: Report from Study
  Country: US (occurrence: US)
  Receive Date: 20250328
  Receipt Date: 20250418
  Transmission Date: 20250717
  Serious: Yes (Death, Hospitalization, Other)
  Sender: BAYER HEALTHCARE PHARMACEUTICALS INC.
  Company Number: US-BAYER-2025A042289

PATIENT
  Age: 87 Year
  Sex: Male

DRUGS (3)
  1. KERENDIA [Suspect]
     Active Substance: FINERENONE
  2. UNSPECIFIED INGREDIENT [Concomitant]
     Active Substance: UNSPECIFIED INGREDIENT
  3. DEXTROSE [Concomitant]
     Active Substance: DEXTROSE MONOHYDRATE
     Indication: Diabetes mellitus

REACTIONS (13)
  - Death [Fatal]
  - Influenza [None]
  - Unresponsive to stimuli [None]
  - Renal failure [None]
  - Pneumonia [None]
  - Dehydration [None]
  - Blood glucose decreased [None]
  - Cerebrovascular accident [None]
  - Clostridium difficile colitis [None]
  - Illness [None]
  - Vomiting [None]
  - Diarrhoea [None]
  - Toxicity to various agents [None]

NARRATIVE: CASE EVENT DATE: 20250320
